FAERS Safety Report 13901069 (Version 1)
Quarter: 2017Q3

REPORT INFORMATION
  Report Type: Spontaneous
  Country: US (occurrence: US)
  Receive Date: 20170824
  Receipt Date: 20170824
  Transmission Date: 20171127
  Serious: No
  Sender: FDA-Public Use
  Company Number: US-ASTRAZENECA-2017SE85680

PATIENT
  Age: 25515 Day
  Sex: Female
  Weight: 98 kg

DRUGS (10)
  1. JANUVIA [Concomitant]
     Active Substance: SITAGLIPTIN PHOSPHATE
     Indication: TYPE 2 DIABETES MELLITUS
     Route: 048
     Dates: start: 2015
  2. ATORVASTATIN [Concomitant]
     Active Substance: ATORVASTATIN
     Indication: BLOOD CHOLESTEROL
     Route: 048
     Dates: start: 20170719
  3. VITAMIN D [Concomitant]
     Active Substance: CHOLECALCIFEROL
     Indication: VITAMIN A DEFICIENCY
     Route: 048
     Dates: start: 2015
  4. WELLBUTRIN [Concomitant]
     Active Substance: BUPROPION HYDROCHLORIDE
     Indication: ANXIETY
     Route: 048
     Dates: start: 20170725
  5. METFORMIN [Concomitant]
     Active Substance: METFORMIN HYDROCHLORIDE
     Indication: TYPE 2 DIABETES MELLITUS
     Dosage: UNKNOWN
     Route: 048
     Dates: start: 2010, end: 2013
  6. PROBIOTICS [Concomitant]
     Active Substance: PROBIOTICS NOS
     Indication: PROPHYLAXIS
     Route: 048
  7. GLIMEPIRIDE. [Concomitant]
     Active Substance: GLIMEPIRIDE
     Indication: TYPE 2 DIABETES MELLITUS
     Route: 048
     Dates: start: 2014
  8. BYDUREON [Suspect]
     Active Substance: EXENATIDE
     Indication: TYPE 2 DIABETES MELLITUS
     Dosage: 2 MG ONCE A WEEK
     Route: 058
     Dates: start: 20170719
  9. LEXAPRO [Concomitant]
     Active Substance: ESCITALOPRAM OXALATE
     Indication: ANXIETY
     Dosage: UNKNOWN
     Route: 048
     Dates: start: 2010, end: 20170724
  10. MULTIVITAMIN [Concomitant]
     Active Substance: VITAMINS
     Indication: NUTRITIONAL SUPPLEMENTATION
     Route: 048
     Dates: start: 2014

REACTIONS (12)
  - Dyspepsia [Recovered/Resolved]
  - Gait disturbance [Unknown]
  - Fatigue [Not Recovered/Not Resolved]
  - Dysgeusia [Recovered/Resolved]
  - Drug ineffective [Recovered/Resolved]
  - Blood glucose abnormal [Unknown]
  - Headache [Recovered/Resolved]
  - Hyperhidrosis [Recovered/Resolved]
  - Listless [Not Recovered/Not Resolved]
  - Dehydration [Recovering/Resolving]
  - Photosensitivity reaction [Recovered/Resolved]
  - Eructation [Recovered/Resolved]

NARRATIVE: CASE EVENT DATE: 20170719
